FAERS Safety Report 8720656 (Version 2)
Quarter: 2012Q4

REPORT INFORMATION
  Report Type: 
  Country: DE (occurrence: DE)
  Receive Date: 20120813
  Receipt Date: 20121008
  Transmission Date: 20130627
  Serious: Yes (Life-Threatening)
  Sender: FDA-Public Use
  Company Number: DE-ROCHE-1099541

PATIENT
  Sex: Male
  Weight: 89 kg

DRUGS (3)
  1. AVASTIN [Suspect]
     Indication: NON-HODGKIN^S LYMPHOMA
     Route: 042
     Dates: start: 20120529, end: 20120710
  2. CARBOPLATIN [Suspect]
     Indication: NON-HODGKIN^S LYMPHOMA
     Route: 042
     Dates: start: 20120531, end: 20120712
  3. TAXOL [Suspect]
     Indication: NON-HODGKIN^S LYMPHOMA
     Route: 042
     Dates: start: 20120531, end: 20120712

REACTIONS (2)
  - Tracheal injury [Not Recovered/Not Resolved]
  - Neoplasm malignant [Unknown]
